FAERS Safety Report 7235469-0 (Version None)
Quarter: 2011Q1

REPORT INFORMATION
  Report Type: 
  Country: None (occurrence: None)
  Receive Date: 20110110
  Receipt Date: 20110104
  Transmission Date: 20110831
  Serious: Yes (Hospitalization)
  Sender: FDA-Public Use
  Company Number: 2010SP055557

PATIENT
  Age: 66 Year
  Sex: Female
  Weight: 64 kg

DRUGS (3)
  1. TEMOZOLOMIDE [Suspect]
     Indication: OVARIAN CANCER
     Dosage: 345 MG; QD; PO
     Route: 048
     Dates: start: 20100812
  2. ABT-888 (INVESTIGATIONAL DRUG) [Suspect]
     Indication: OVARIAN CANCER
     Dosage: 40 MG; BID; PO
     Route: 048
     Dates: start: 20100812
  3. DOMPERIDONE [Concomitant]

REACTIONS (4)
  - PERIPHERAL SENSORY NEUROPATHY [None]
  - ASCITES [None]
  - FEBRILE NEUTROPENIA [None]
  - BONE MARROW FAILURE [None]
